FAERS Safety Report 13935814 (Version 3)
Quarter: 2017Q3

REPORT INFORMATION
  Report Type: Report from Study
  Country: IT (occurrence: IT)
  Receive Date: 20170905
  Receipt Date: 20170922
  Transmission Date: 20171127
  Serious: Yes (Hospitalization)
  Sender: FDA-Public Use
  Company Number: IT-MYLANLABS-2017M1054487

PATIENT
  Age: 75 Year
  Sex: Female

DRUGS (4)
  1. CLOZAPINE. [Suspect]
     Active Substance: CLOZAPINE
     Dosage: 0.75 DF, PM
     Dates: start: 2017
  2. LORAZEPAM. [Suspect]
     Active Substance: LORAZEPAM
     Indication: PRODUCT USED FOR UNKNOWN INDICATION
     Route: 048
  3. XATRAL [Suspect]
     Active Substance: ALFUZOSIN
     Indication: INCONTINENCE
     Route: 048
  4. CLOZAPINE. [Suspect]
     Active Substance: CLOZAPINE
     Indication: PRODUCT USED FOR UNKNOWN INDICATION
     Dosage: UNK
     Route: 048
     Dates: end: 2017

REACTIONS (6)
  - Unresponsive to stimuli [Recovering/Resolving]
  - Psychomotor hyperactivity [Unknown]
  - Toxicity to various agents [Recovering/Resolving]
  - Miosis [Recovering/Resolving]
  - Sopor [Recovering/Resolving]
  - Drug abuse [Recovering/Resolving]

NARRATIVE: CASE EVENT DATE: 2017
